FAERS Safety Report 9453503 (Version 1)
Quarter: 2013Q3

REPORT INFORMATION
  Report Type: Spontaneous
  Country: US (occurrence: US)
  Receive Date: 20130812
  Receipt Date: 20130812
  Transmission Date: 20140515
  Serious: Yes (Hospitalization, Disabling)
  Sender: FDA-Public Use
  Company Number: US-SANOFI-AVENTIS-2013SA079097

PATIENT
  Age: 82 Year
  Sex: Female

DRUGS (8)
  1. ENOXAPARIN SODIUM - WINTHROP [Suspect]
     Indication: THROMBOSIS
     Dosage: DOSE:PATIENT STARTED WITH 70 MG THEN WENT TO 60 MG AND NOW HE IS ON 40 MG.
     Route: 065
  2. ENOXAPARIN SODIUM - WINTHROP [Suspect]
     Indication: PULMONARY EMBOLISM
     Dosage: DOSE:PATIENT STARTED WITH 70 MG THEN WENT TO 60 MG AND NOW HE IS ON 40 MG.
     Route: 065
  3. COUMADIN [Suspect]
     Indication: THROMBOSIS
     Route: 065
  4. LEVOTHYROXINE [Concomitant]
  5. LORATADINE [Concomitant]
  6. PREDNISONE [Concomitant]
  7. QUETIAPINE [Concomitant]
  8. ALL OTHER THERAPEUTIC PRODUCTS [Concomitant]

REACTIONS (14)
  - Neoplasm malignant [Not Recovered/Not Resolved]
  - Brain neoplasm [Not Recovered/Not Resolved]
  - Neoplasm [Not Recovered/Not Resolved]
  - Thrombosis [Recovered/Resolved]
  - Pneumonia [Unknown]
  - Full blood count decreased [Unknown]
  - Disability [Unknown]
  - Decubitus ulcer [Unknown]
  - Malaise [Recovered/Resolved]
  - Cognitive disorder [Unknown]
  - Sleep disorder [Unknown]
  - Weight decreased [Unknown]
  - Oedema peripheral [Unknown]
  - Pain [Unknown]
